FAERS Safety Report 14719562 (Version 3)
Quarter: 2018Q4

REPORT INFORMATION
  Report Type: Spontaneous
  Country: US (occurrence: US)
  Receive Date: 20180405
  Receipt Date: 20181002
  Transmission Date: 20190204
  Serious: Yes (Hospitalization)
  Sender: FDA-Public Use
  Company Number: US-PFIZER INC-2018137410

PATIENT
  Age: 70 Year
  Sex: Female
  Weight: 65.77 kg

DRUGS (20)
  1. XELJANZ [Suspect]
     Active Substance: TOFACITINIB CITRATE
     Indication: RHEUMATOID ARTHRITIS
     Dosage: 10 MG, 1X/DAY (2 PER AM)
     Dates: start: 2015
  2. ALPRAZOLAM. [Concomitant]
     Active Substance: ALPRAZOLAM
     Indication: ANXIETY
     Dosage: 1 MG, (1/2 PER AM)
     Dates: start: 2002
  3. CENTRUM SILVER [ASCORBIC ACID;BIOTIN;CALCIUM;CALCIUM PANTOTHENATE;CHLO [Concomitant]
     Dosage: UNK
     Dates: start: 1998
  4. GARLIC [ALLIUM SATIVUM] [Concomitant]
     Dosage: UNK
     Dates: start: 2000
  5. XELJANZ [Suspect]
     Active Substance: TOFACITINIB CITRATE
     Dosage: 5 MG, 2X/DAY
     Route: 048
     Dates: end: 201803
  6. PANTOPRAZOLE [Concomitant]
     Active Substance: PANTOPRAZOLE
     Indication: GASTROOESOPHAGEAL REFLUX DISEASE
     Dosage: 40 MG, (AM)
     Dates: start: 1980
  7. MELATONIN [Concomitant]
     Active Substance: MELATONIN
     Dosage: 5 MG, UNK
     Dates: start: 2012
  8. MONTELUKAST [Concomitant]
     Active Substance: MONTELUKAST SODIUM
     Indication: HYPERSENSITIVITY
     Dosage: 10 MG, (PM)
     Dates: start: 2000
  9. HYDROXYCHLOROQUINE [Concomitant]
     Active Substance: HYDROXYCHLOROQUINE
     Indication: RHEUMATOID ARTHRITIS
     Dosage: 200 MG, UNK
     Dates: start: 2000
  10. ESTRADIOL. [Concomitant]
     Active Substance: ESTRADIOL
     Indication: BLOOD OESTROGEN ABNORMAL
     Dosage: .5 MG, (1/2 PER AM)
     Dates: start: 2016
  11. MEGARED OMEGA 3 KRILL OIL [Concomitant]
     Dosage: UNK
     Dates: start: 2005
  12. LIV 52 [ACHILLEA MILLEFOLIUM;AYURVEDIC PREPARATION NOS;CAPPARIS SPINOS [Concomitant]
     Indication: LIVER DISORDER
     Dosage: UNK
     Dates: start: 2005
  13. VITAMIN D [COLECALCIFEROL] [Concomitant]
     Dosage: UNK
     Dates: start: 2012
  14. TURMERIC CURCUMIN [Concomitant]
     Active Substance: HERBALS\TURMERIC
     Dosage: UNK
     Dates: start: 2018
  15. BENAZEPRIL [Concomitant]
     Active Substance: BENAZEPRIL HYDROCHLORIDE
     Indication: BLOOD PRESSURE ABNORMAL
     Dosage: 20 MG, (AM)
     Dates: start: 2000
  16. BENAZEPRIL [Concomitant]
     Active Substance: BENAZEPRIL HYDROCHLORIDE
     Dosage: 5 MG, (PM)
     Dates: start: 2000
  17. SPIRIVA [Concomitant]
     Active Substance: TIOTROPIUM BROMIDE MONOHYDRATE
     Indication: ASTHMA
     Dosage: 18 UG, (AM)
     Dates: start: 2008
  18. ATORVASTATIN [Concomitant]
     Active Substance: ATORVASTATIN
     Indication: BLOOD CHOLESTEROL ABNORMAL
     Dosage: 20 MG, (PM)
     Dates: start: 2017
  19. COENZYME Q10 [Concomitant]
     Active Substance: UBIDECARENONE
     Dosage: UNK
     Dates: start: 2000
  20. VITAMIN E [TOCOPHEROL] [Concomitant]
     Dosage: UNK
     Dates: start: 2012

REACTIONS (5)
  - Ear discomfort [Not Recovered/Not Resolved]
  - Bursitis [Not Recovered/Not Resolved]
  - Ear disorder [Not Recovered/Not Resolved]
  - Sinusitis [Recovered/Resolved]
  - Nasopharyngitis [Recovered/Resolved]

NARRATIVE: CASE EVENT DATE: 201803
